FAERS Safety Report 4275788-3 (Version None)
Quarter: 2004Q1

REPORT INFORMATION
  Report Type: 
  Country: None (occurrence: None)
  Receive Date: 20040121
  Receipt Date: 20020516
  Transmission Date: 20041129
  Serious: Yes (Disabling)
  Sender: FDA-Public Use
  Company Number: WAES 0205USA02191

PATIENT
  Age: 46 Year
  Sex: Male
  Weight: 77 kg

DRUGS (2)
  1. VIOXX [Suspect]
     Indication: POST PROCEDURAL PAIN
     Route: 048
     Dates: start: 20010316, end: 20010729
  2. VIOXX [Suspect]
     Indication: SWELLING
     Route: 048
     Dates: start: 20010316, end: 20010729

REACTIONS (3)
  - CONVULSION [None]
  - DEPRESSION [None]
  - INJURY [None]
